FAERS Safety Report 8969735 (Version 4)
Quarter: 2013Q2

REPORT INFORMATION
  Report Type: Spontaneous
  Country: US (occurrence: US)
  Receive Date: 20121218
  Receipt Date: 20130426
  Transmission Date: 20140414
  Serious: No
  Sender: FDA-Public Use
  Company Number: US-009507513-1212USA004305

PATIENT
  Sex: Male

DRUGS (6)
  1. VICTRELIS [Suspect]
     Indication: HEPATITIS C
     Dosage: 800 MG, TID
     Route: 048
  2. VICTRELIS [Suspect]
     Dosage: 800 MG, TID
     Route: 048
  3. VICTRELIS [Suspect]
     Dosage: 800 MG, TID
     Route: 048
     Dates: start: 20121023
  4. VICTRELIS [Suspect]
     Dosage: 800 MG, TID
     Route: 048
     Dates: start: 2012
  5. PEGASYS [Suspect]
     Indication: HEPATITIS C
     Dosage: UNK
     Dates: start: 20121002
  6. RIBASPHERE [Suspect]
     Indication: HEPATITIS C
     Dosage: UNK
     Dates: start: 20121002

REACTIONS (11)
  - Tooth extraction [Unknown]
  - Infection [Unknown]
  - Headache [Unknown]
  - Hunger [Unknown]
  - Dry throat [Unknown]
  - Dyspepsia [Unknown]
  - Fatigue [Unknown]
  - Rash [Unknown]
  - Fatigue [Unknown]
  - Fatigue [Unknown]
  - Rash [Unknown]
